FAERS Safety Report 8215662 (Version 10)
Quarter: 2014Q4

REPORT INFORMATION
  Report Type: Spontaneous
  Country: US (occurrence: US)
  Receive Date: 20111031
  Receipt Date: 20141221
  Transmission Date: 20150529
  Serious: Yes (Hospitalization, Other)
  Sender: FDA-Public Use
  Company Number: US-GLAXOSMITHKLINE-A0950896A

PATIENT
  Age: 32 Year
  Sex: Female
  Weight: 100 kg

DRUGS (18)
  1. FAMOTIDINE. [Concomitant]
     Active Substance: FAMOTIDINE
  2. FLOLAN [Suspect]
     Active Substance: EPOPROSTENOL SODIUM
     Dates: start: 20080502
  3. FLOLAN [Suspect]
     Active Substance: EPOPROSTENOL SODIUM
     Dates: start: 20080502
  4. LASIX [Concomitant]
     Active Substance: FUROSEMIDE
  5. FLOLAN [Suspect]
     Active Substance: EPOPROSTENOL SODIUM
     Dates: start: 20080502
  6. POTASSIUM [Concomitant]
     Active Substance: POTASSIUM
  7. CITALOPRAM [Concomitant]
     Active Substance: CITALOPRAM HYDROBROMIDE
  8. DOCUSATE [Concomitant]
     Active Substance: DOCUSATE
  9. FLOLAN [Suspect]
     Active Substance: EPOPROSTENOL SODIUM
     Indication: PULMONARY ARTERIAL HYPERTENSION
     Dosage: CONCENTRATION 75,000 NG/MLPUMP RATE 77 ML/DAYVIAL STRENGTH 1.5MG40 NG/KG/MIN
     Route: 042
     Dates: start: 20080502
  10. FLOLAN [Suspect]
     Active Substance: EPOPROSTENOL SODIUM
     Dosage: 40 NG/KG/MIN CONTINUOUS
     Dates: start: 20080502
  11. DIGOXIN. [Concomitant]
     Active Substance: DIGOXIN
  12. PATANASE [Concomitant]
     Active Substance: OLOPATADINE HYDROCHLORIDE
  13. REVATIO [Concomitant]
     Active Substance: SILDENAFIL CITRATE
  14. LETAIRIS [Concomitant]
     Active Substance: AMBRISENTAN
  15. LORTAB [Concomitant]
     Active Substance: ACETAMINOPHEN\HYDROCODONE BITARTRATE
     Dosage: 5/500 EVERY 4 HOURS
  16. FLOLAN [Suspect]
     Active Substance: EPOPROSTENOL SODIUM
     Dates: start: 20080502
  17. CLARITIN [Concomitant]
     Active Substance: LORATADINE
  18. COUMADIN [Concomitant]
     Active Substance: WARFARIN SODIUM

REACTIONS (8)
  - Hospitalisation [Recovered/Resolved]
  - Lung disorder [Recovered/Resolved]
  - Pain in jaw [Recovered/Resolved]
  - Sinusitis [Unknown]
  - Pneumonia [Unknown]
  - Clostridium difficile infection [Not Recovered/Not Resolved]
  - Pneumothorax [Recovered/Resolved]
  - Flushing [Recovered/Resolved]

NARRATIVE: CASE EVENT DATE: 20111026
